FAERS Safety Report 11029659 (Version 1)
Quarter: 2015Q2

REPORT INFORMATION
  Report Type: Spontaneous
  Country: CA (occurrence: None)
  Receive Date: 20150414
  Receipt Date: 20150414
  Transmission Date: 20150821
  Serious: Yes (Death, Hospitalization)
  Sender: FDA-Public Use
  Company Number: None

PATIENT
  Age: 8 Year
  Sex: Male
  Weight: 34 kg

DRUGS (2)
  1. ETOPOSIDE (VP-16) [Suspect]
     Active Substance: ETOPOSIDE
     Dates: end: 20150125
  2. IFOSFAMIDE. [Suspect]
     Active Substance: IFOSFAMIDE
     Dates: end: 20150125

REACTIONS (9)
  - Seizure [None]
  - Blood sodium decreased [None]
  - Pulmonary oedema [None]
  - Intracranial pressure increased [None]
  - Pyrexia [None]
  - Platelet count decreased [None]
  - Confusional state [None]
  - Brain herniation [None]
  - Clostridium test positive [None]

NARRATIVE: CASE EVENT DATE: 20150203
